FAERS Safety Report 5388481-0 (Version None)
Quarter: 2007Q3

REPORT INFORMATION
  Report Type: 
  Country: None (occurrence: None)
  Receive Date: 20070716
  Receipt Date: 20070704
  Transmission Date: 20080115
  Serious: Yes (Other)
  Sender: FDA-Public Use
  Company Number: GB-PFIZER INC-2007054938

PATIENT
  Age: 60 Year
  Sex: Female

DRUGS (3)
  1. ARTHROTEC [Suspect]
     Indication: FIBROMYALGIA
     Route: 048
  2. ARTHROTEC [Suspect]
     Indication: OSTEOARTHRITIS
  3. ALL OTHER THERAPEUTIC PRODUCTS [Concomitant]

REACTIONS (2)
  - DRUG WITHDRAWAL SYNDROME [None]
  - RENAL DISORDER [None]
